FAERS Safety Report 8521791-4 (Version None)
Quarter: 2012Q3

REPORT INFORMATION
  Report Type: 
  Country: None (occurrence: None)
  Receive Date: 20120719
  Receipt Date: 20120612
  Transmission Date: 20120928
  Serious: Yes (Death, Other)
  Sender: FDA-Public Use
  Company Number: US-BRISTOL-MYERS SQUIBB COMPANY-16402943

PATIENT
  Sex: Female
  Weight: 136 kg

DRUGS (1)
  1. YERVOY [Suspect]

REACTIONS (4)
  - DEATH [None]
  - PULMONARY EMBOLISM [None]
  - DIARRHOEA [None]
  - INTESTINAL PERFORATION [None]
